FAERS Safety Report 20002040 (Version 3)
Quarter: 2022Q1

REPORT INFORMATION
  Report Type: Spontaneous
  Country: US (occurrence: US)
  Receive Date: 20211027
  Receipt Date: 20220128
  Transmission Date: 20220423
  Serious: No
  Sender: FDA-Public Use
  Company Number: US-SANOFI-00820993

PATIENT
  Age: 73 Year
  Sex: Female

DRUGS (1)
  1. NASACORT AQ [Suspect]
     Active Substance: TRIAMCINOLONE ACETONIDE
     Indication: Hypersensitivity
     Dosage: 1 SPRAY EACH NOSTRIL
     Route: 045

REACTIONS (2)
  - Pain in extremity [Unknown]
  - Product delivery mechanism issue [Unknown]
